FAERS Safety Report 4285431-5 (Version None)
Quarter: 2004Q1

REPORT INFORMATION
  Report Type: 
  Country: None (occurrence: None)
  Receive Date: 20040202
  Receipt Date: 20040126
  Transmission Date: 20041129
  Serious: Yes (Life-Threatening)
  Sender: FDA-Public Use
  Company Number: 200410160JP

PATIENT
  Age: 68 Year
  Sex: Male
  Weight: 44 kg

DRUGS (8)
  1. CEFOTAXIME SODIUM (CEFOTAX) SOLUTION FOR INFUSION [Suspect]
     Indication: MENINGITIS
     Dosage: 1 G BID IVF
     Dates: start: 20031012, end: 20031016
  2. WARFARIN SODIUM [Suspect]
     Indication: PHLEBOTHROMBOSIS
     Dosage: 3 MG PO
     Route: 048
     Dates: start: 20031001, end: 20031014
  3. TENORMIN [Suspect]
     Indication: ATRIAL TACHYCARDIA
     Dosage: 50 MG PO
     Route: 048
     Dates: start: 20031005, end: 20031012
  4. PL GRANULES [Suspect]
     Indication: LARYNGOPHARYNGITIS
     Dosage: 1 G TID PO
     Route: 048
     Dates: start: 20031011, end: 20031012
  5. VOLTAREN [Suspect]
     Indication: PYREXIA
     Dosage: 50 MG/DAY R
     Route: 054
     Dates: start: 20031012, end: 20031015
  6. ACICLOVIR SOLUTION FOR INFUSION [Suspect]
     Indication: MENINGITIS
     Dosage: 250 MG TID IVF
     Route: 042
     Dates: start: 20031012, end: 20031016
  7. CIBENZOLINE SUCCINATE (CIBENOL) [Concomitant]
  8. HEPARIN [Concomitant]

REACTIONS (6)
  - ATRIAL TACHYCARDIA [None]
  - CONDITION AGGRAVATED [None]
  - DRUG EFFECT DECREASED [None]
  - HYPERSENSITIVITY [None]
  - INTERSTITIAL LUNG DISEASE [None]
  - LYMPHOCYTE STIMULATION TEST POSITIVE [None]
